FAERS Safety Report 8357792-9 (Version None)
Quarter: 2012Q2

REPORT INFORMATION
  Report Type: 
  Country: None (occurrence: None)
  Receive Date: 20120514
  Receipt Date: 20110408
  Transmission Date: 20120825
  Serious: No
  Sender: FDA-Public Use
  Company Number: US-ALEXION-A201100501

PATIENT
  Sex: Male

DRUGS (2)
  1. SOLIRIS [Suspect]
     Indication: PAROXYSMAL NOCTURNAL HAEMOGLOBINURIA
     Dosage: 1200 MG Q2W
     Route: 042
  2. SOLIRIS [Suspect]
     Dosage: 900 MG, SINGLE (ADMINISTERED INADVERTENTLY)

REACTIONS (11)
  - INCORRECT DOSE ADMINISTERED [None]
  - DYSSTASIA [None]
  - ASTHENIA [None]
  - HAEMATURIA [None]
  - DYSPNOEA [None]
  - DIZZINESS [None]
  - HAEMOGLOBINURIA [None]
  - MALAISE [None]
  - COUGH [None]
  - HYPOAESTHESIA [None]
  - ABDOMINAL PAIN [None]
